FAERS Safety Report 17680504 (Version 1)
Quarter: 2020Q2

REPORT INFORMATION
  Report Type: Report from Study
  Country: US (occurrence: US)
  Receive Date: 20200417
  Receipt Date: 20200417
  Transmission Date: 20200714
  Serious: Yes (Hospitalization)
  Sender: FDA-Public Use
  Company Number: US-ROCHE-2582930

PATIENT
  Age: 77 Year
  Sex: Male
  Weight: 113 kg

DRUGS (5)
  1. ATEZOLIZUMAB. [Suspect]
     Active Substance: ATEZOLIZUMAB
     Indication: COLORECTAL CANCER METASTATIC
     Route: 042
     Dates: start: 20190709
  2. OXALIPLATIN. [Suspect]
     Active Substance: OXALIPLATIN
     Indication: COLORECTAL CANCER METASTATIC
     Dosage: IV OVER 2 HOURS ON DAY 1
     Route: 042
     Dates: start: 20190709, end: 20190827
  3. 5-FLUOROURACIL [FLUOROURACIL] [Suspect]
     Active Substance: FLUOROURACIL
     Indication: COLORECTAL CANCER METASTATIC
     Dosage: OVER 2-4 MINUTES ON DAY 1,?FOLLOWED BY 2400MG/M2 CONTINUOUS INFUSION OVER 46-48 HOURS STARTING DAY 1
     Route: 042
     Dates: start: 20190709, end: 20190827
  4. BEVACIZUMAB. [Suspect]
     Active Substance: BEVACIZUMAB
     Indication: COLORECTAL CANCER METASTATIC
     Dosage: 30 MINUTES ON DAY 1
     Route: 042
     Dates: start: 20190709, end: 20190827
  5. LEUCOVORIN CALCIUM. [Suspect]
     Active Substance: LEUCOVORIN CALCIUM
     Indication: COLORECTAL CANCER METASTATIC
     Dosage: 400MG/M2 IV OVER 2 HOURS ON DAY 1
     Route: 042
     Dates: start: 20190709, end: 20190827

REACTIONS (1)
  - Dehydration [Recovered/Resolved]

NARRATIVE: CASE EVENT DATE: 20190909
